FAERS Safety Report 6210328-0 (Version None)
Quarter: 2009Q2

REPORT INFORMATION
  Report Type: 
  Country: None (occurrence: None)
  Receive Date: 20090527
  Receipt Date: 20090518
  Transmission Date: 20091009
  Serious: Yes (Hospitalization)
  Sender: FDA-Public Use
  Company Number: 2009005549

PATIENT
  Age: 63 Year
  Sex: Female
  Weight: 49.8957 kg

DRUGS (11)
  1. ACTIQ [Suspect]
     Indication: BREAKTHROUGH PAIN
     Dosage: 200 MCG (200 MCG, 1 IN 1 ONCE) BU, 1600 MCG (400 MCG, 1 IN 6 HR)
     Route: 002
     Dates: start: 20090509, end: 20090509
  2. ACTIQ [Suspect]
     Indication: PANCREATITIS
     Dosage: 200 MCG (200 MCG, 1 IN 1 ONCE) BU, 1600 MCG (400 MCG, 1 IN 6 HR)
     Route: 002
     Dates: start: 20090509, end: 20090509
  3. ACTIQ [Suspect]
     Indication: SEPSIS
     Dosage: 200 MCG (200 MCG, 1 IN 1 ONCE) BU, 1600 MCG (400 MCG, 1 IN 6 HR)
     Route: 002
     Dates: start: 20090509, end: 20090509
  4. ACTIQ [Suspect]
     Indication: BREAKTHROUGH PAIN
     Dosage: 200 MCG (200 MCG, 1 IN 1 ONCE) BU, 1600 MCG (400 MCG, 1 IN 6 HR)
     Route: 002
     Dates: start: 20090513
  5. ACTIQ [Suspect]
     Indication: PANCREATITIS
     Dosage: 200 MCG (200 MCG, 1 IN 1 ONCE) BU, 1600 MCG (400 MCG, 1 IN 6 HR)
     Route: 002
     Dates: start: 20090513
  6. ACTIQ [Suspect]
     Indication: SEPSIS
     Dosage: 200 MCG (200 MCG, 1 IN 1 ONCE) BU, 1600 MCG (400 MCG, 1 IN 6 HR)
     Route: 002
     Dates: start: 20090513
  7. FENTANYL [Concomitant]
  8. DILAUDID [Concomitant]
  9. CLONIDINE [Concomitant]
  10. LOREZEPAM [Concomitant]
  11. PROTONIX [Concomitant]

REACTIONS (5)
  - BLOOD PRESSURE INCREASED [None]
  - DRUG INEFFECTIVE [None]
  - HEART RATE INCREASED [None]
  - INFECTION [None]
  - RESPIRATORY RATE INCREASED [None]
